FAERS Safety Report 5256442-8 (Version None)
Quarter: 2007Q1

REPORT INFORMATION
  Report Type: 
  Country: None (occurrence: None)
  Receive Date: 20070306
  Receipt Date: 20070222
  Transmission Date: 20070707
  Serious: Yes (Other)
  Sender: FDA-Public Use
  Company Number: UG-GILEAD-2006-0009217

PATIENT
  Sex: Male

DRUGS (2)
  1. TENOFOVIR DISOPROXIL FUMARATE [Suspect]
     Indication: HIV INFECTION
     Dates: start: 20031103, end: 20060123
  2. COMBIVIR [Concomitant]
     Indication: HIV INFECTION
     Dates: start: 20031103, end: 20060123

REACTIONS (1)
  - NEPHRITIS [None]
